FAERS Safety Report 6711535-0 (Version None)
Quarter: 2010Q2

REPORT INFORMATION
  Report Type: 
  Country: None (occurrence: None)
  Receive Date: 20100505
  Receipt Date: 20100422
  Transmission Date: 20101027
  Serious: Yes (Hospitalization)
  Sender: FDA-Public Use
  Company Number: PHHY2009IT55523

PATIENT
  Sex: Male

DRUGS (4)
  1. SANDIMMUNE [Suspect]
     Indication: HEART TRANSPLANT
     Dosage: 1.5 ML, BID
     Route: 048
     Dates: start: 20091116, end: 20091210
  2. SANDIMMUNE [Suspect]
     Dosage: UNK
     Dates: end: 20091211
  3. EVEROLIMUS [Concomitant]
     Dosage: UNK
  4. PREDNISONE [Concomitant]
     Dosage: UNK

REACTIONS (2)
  - COGNITIVE DISORDER [None]
  - HALLUCINATION, VISUAL [None]
